FAERS Safety Report 12207003 (Version 1)
Quarter: 2016Q1

REPORT INFORMATION
  Report Type: Spontaneous
  Country: US (occurrence: None)
  Receive Date: 20160323
  Receipt Date: 20160323
  Transmission Date: 20160526
  Serious: No
  Sender: FDA-Public Use
  Company Number: None

PATIENT

DRUGS (1)
  1. SULFAMETHOXAZOLE AND TRIMETHOPRIM (DOUBLE STRENGTH) [Suspect]
     Active Substance: SULFAMETHOXAZOLE\TRIMETHOPRIM
     Indication: FUNGAL INFECTION
     Route: 048
     Dates: start: 20150903, end: 20150904

REACTIONS (4)
  - Pain [None]
  - Blister [None]
  - Contusion [None]
  - Burning sensation [None]

NARRATIVE: CASE EVENT DATE: 20150903
